FAERS Safety Report 12629597 (Version 1)
Quarter: 2016Q3

REPORT INFORMATION
  Report Type: Spontaneous
  Country: FR (occurrence: FR)
  Receive Date: 20160808
  Receipt Date: 20160808
  Transmission Date: 20161109
  Serious: Yes (Other)
  Sender: FDA-Public Use
  Company Number: FR-GLAXOSMITHKLINE-FR2016GSK114009

PATIENT
  Age: 16 Month
  Sex: Male

DRUGS (3)
  1. LAMOTRIGINE. [Suspect]
     Active Substance: LAMOTRIGINE
     Indication: PRODUCT USED FOR UNKNOWN INDICATION
  2. LEVETIRACETAM. [Concomitant]
     Active Substance: LEVETIRACETAM
     Dosage: 200 MG, BID
  3. LEVETIRACETAM. [Concomitant]
     Active Substance: LEVETIRACETAM
     Indication: IDIOPATHIC GENERALISED EPILEPSY
     Dosage: 300 MG, BID

REACTIONS (9)
  - Poisoning [Recovering/Resolving]
  - Munchausen^s syndrome [Unknown]
  - Toxicity to various agents [Recovering/Resolving]
  - Ataxia [Recovering/Resolving]
  - Eyelid myoclonus [Recovering/Resolving]
  - Drug screen positive [Unknown]
  - Off label use [Unknown]
  - Condition aggravated [Recovering/Resolving]
  - Wrong drug administered [Unknown]
